FAERS Safety Report 23891526 (Version 1)
Quarter: 2024Q2

REPORT INFORMATION
  Report Type: Spontaneous
  Country: US (occurrence: US)
  Receive Date: 20240524
  Receipt Date: 20240524
  Transmission Date: 20240715
  Serious: Yes (Other)
  Sender: FDA-Public Use
  Company Number: US-BRISTOL-MYERS SQUIBB COMPANY-2024-077195

PATIENT
  Age: 49 Year
  Sex: Male

DRUGS (1)
  1. OZANIMOD [Suspect]
     Active Substance: OZANIMOD
     Indication: Product used for unknown indication
     Dates: start: 202304

REACTIONS (2)
  - Cytomegalovirus colitis [Unknown]
  - Coccidioidomycosis [Unknown]
